FAERS Safety Report 7364998-4 (Version None)
Quarter: 2011Q1

REPORT INFORMATION
  Report Type: 
  Country: None (occurrence: None)
  Receive Date: 20110311
  Receipt Date: 20110224
  Transmission Date: 20110831
  Serious: Yes (Other)
  Sender: FDA-Public Use
  Company Number: AUR-APL-2011-00849

PATIENT
  Age: 60 Year
  Sex: Male
  Weight: 83.9 kg

DRUGS (5)
  1. SIMVASTATIN [Suspect]
     Indication: BLOOD CHOLESTEROL ABNORMAL
     Dosage: 10MG-DAILY
     Dates: start: 20101101, end: 20100101
  2. LIPITOR [Suspect]
     Indication: BLOOD CHOLESTEROL ABNORMAL
     Dosage: 10MG-DAILY
     Dates: start: 20100301, end: 20101001
  3. ALTACE [Suspect]
     Indication: BLOOD PRESSURE ABNORMAL
     Dosage: 10MG - DAILY
     Dates: start: 20100101
  4. SIMVASTATIN [Suspect]
     Indication: BLOOD CHOLESTEROL ABNORMAL
     Dosage: 10MG-DAILY
     Dates: start: 20081001
  5. LISINOPRIL [Suspect]
     Indication: BLOOD PRESSURE ABNORMAL
     Dosage: 10MG-DAILY

REACTIONS (5)
  - THINKING ABNORMAL [None]
  - DRUG INEFFECTIVE [None]
  - HAEMATOCHEZIA [None]
  - BLOOD URINE PRESENT [None]
  - MYALGIA [None]
